FAERS Safety Report 25451363 (Version 1)
Quarter: 2025Q2

REPORT INFORMATION
  Report Type: Report from Study
  Country: US (occurrence: US)
  Receive Date: 20250618
  Receipt Date: 20250618
  Transmission Date: 20250716
  Serious: Yes (Other)
  Sender: ALEXION PHARMACEUTICALS
  Company Number: US-ASTRAZENECA-202506USA012304US

PATIENT
  Age: 68 Year

DRUGS (1)
  1. STRENSIQ [Suspect]
     Active Substance: ASFOTASE ALFA
     Indication: Phosphorus metabolism disorder
     Dosage: 2 MILLIGRAM/KILOGRAM, TIW
     Route: 065

REACTIONS (14)
  - Compression fracture [Unknown]
  - Peripheral sensorimotor neuropathy [Not Recovered/Not Resolved]
  - Intraocular pressure increased [Recovering/Resolving]
  - Product dose omission issue [Unknown]
  - Fatigue [Unknown]
  - Back pain [Recovering/Resolving]
  - Pain in extremity [Unknown]
  - Stress fracture [Unknown]
  - Tenderness [Unknown]
  - Muscular weakness [Not Recovered/Not Resolved]
  - Arthritis [Unknown]
  - Intervertebral disc degeneration [Unknown]
  - Arteriosclerosis [Unknown]
  - Scoliosis [Unknown]
